FAERS Safety Report 9179608 (Version 4)
Quarter: 2013Q2

REPORT INFORMATION
  Report Type: Spontaneous
  Country: US (occurrence: US)
  Receive Date: 20130321
  Receipt Date: 20130429
  Transmission Date: 20140414
  Serious: Yes (Hospitalization, Disabling)
  Sender: FDA-Public Use
  Company Number: US-GILEAD-2013-0072277

PATIENT
  Age: 13 Year
  Sex: Female

DRUGS (2)
  1. LETAIRIS [Suspect]
     Indication: PULMONARY HYPERTENSION
     Dates: start: 20120703
  2. TREPROSTINIL [Concomitant]
     Indication: DILATATION VENTRICULAR
     Dosage: 174 DF, UNK
     Route: 058

REACTIONS (2)
  - Cardiac operation [Recovering/Resolving]
  - Aphagia [Unknown]
